FAERS Safety Report 16583200 (Version 1)
Quarter: 2019Q3

REPORT INFORMATION
  Report Type: Spontaneous
  Country: SE (occurrence: SE)
  Receive Date: 20190717
  Receipt Date: 20190717
  Transmission Date: 20191004
  Serious: Yes (Other)
  Sender: FDA-Public Use
  Company Number: SE-GILEAD-2019-0418396

PATIENT
  Age: 48 Year
  Sex: Female

DRUGS (11)
  1. BUPRENORPHINE. [Concomitant]
     Active Substance: BUPRENORPHINE
  2. CONCERTA [Concomitant]
     Active Substance: METHYLPHENIDATE HYDROCHLORIDE
  3. EPCLUSA [Suspect]
     Active Substance: SOFOSBUVIR\VELPATASVIR
     Indication: HEPATITIS C
     Dosage: 1 DOSAGE FORM, QD
     Route: 048
     Dates: start: 20190503, end: 20190513
  4. RITALIN [Concomitant]
     Active Substance: METHYLPHENIDATE HYDROCHLORIDE
  5. PROPAVAN [Concomitant]
     Active Substance: PROPIOMAZINE
  6. FURIX [FUROSEMIDE] [Concomitant]
  7. BEHEPAN [CYANOCOBALAMIN] [Concomitant]
  8. AMLODIPINE [Concomitant]
     Active Substance: AMLODIPINE BESYLATE
  9. GABAPENTIN. [Concomitant]
     Active Substance: GABAPENTIN
  10. LERGIGAN COMP [Concomitant]
     Active Substance: CAFFEINE\EPHEDRINE\PROMETHAZINE
  11. DUROFERON [Concomitant]
     Active Substance: FERROUS SULFATE

REACTIONS (2)
  - Mood swings [Recovered/Resolved]
  - Hunger [Recovered/Resolved]

NARRATIVE: CASE EVENT DATE: 201905
